FAERS Safety Report 6974201-2 (Version None)
Quarter: 2010Q3

REPORT INFORMATION
  Report Type: 
  Country: None (occurrence: None)
  Receive Date: 20100909
  Receipt Date: 20080219
  Transmission Date: 20110219
  Serious: No
  Sender: FDA-Public Use
  Company Number: US-WYE-H02721508

PATIENT
  Sex: Female

DRUGS (12)
  1. PROTONIX [Suspect]
     Route: 048
  2. BENICAR [Concomitant]
  3. CELEBREX [Concomitant]
  4. ESTRACE [Concomitant]
  5. DYAZIDE [Concomitant]
  6. LIDODERM [Concomitant]
  7. LORTAB [Concomitant]
  8. PREMARIN [Concomitant]
  9. REQUIP [Concomitant]
  10. TRAMADOL HCL [Concomitant]
  11. AMITRIPTYLINE HCL [Concomitant]
  12. FLEXERIL [Concomitant]

REACTIONS (1)
  - DRUG SCREEN POSITIVE [None]
